FAERS Safety Report 21311784 (Version 1)
Quarter: 2022Q3

REPORT INFORMATION
  Report Type: Spontaneous
  Country: US (occurrence: None)
  Receive Date: 20220909
  Receipt Date: 20220909
  Transmission Date: 20221027
  Serious: No
  Sender: FDA-Public Use
  Company Number: US-FARMAPROD-202203-0455

PATIENT
  Sex: Male

DRUGS (5)
  1. OXERVATE [Suspect]
     Active Substance: CENEGERMIN-BKBJ
     Indication: Neurotrophic keratopathy
     Route: 047
     Dates: start: 20220310
  2. CEQUA [Concomitant]
     Active Substance: CYCLOSPORINE
  3. DOXYCYCLINE HYCLATE [Concomitant]
     Active Substance: DOXYCYCLINE HYCLATE
  4. FISH OIL [Concomitant]
     Active Substance: FISH OIL
  5. VITAMIN A [Concomitant]
     Active Substance: VITAMIN A
     Dosage: OIL TO EYELIDS

REACTIONS (3)
  - Eye infection [Unknown]
  - Eye pain [Unknown]
  - Ocular discomfort [Unknown]
